FAERS Safety Report 5076715-1 (Version None)
Quarter: 2006Q3

REPORT INFORMATION
  Report Type: 
  Country: None (occurrence: None)
  Receive Date: 20060725
  Receipt Date: 20060619
  Transmission Date: 20061208
  Serious: Yes (Other)
  Sender: FDA-Public Use
  Company Number: 200612712BWH

PATIENT
  Age: 78 Year
  Sex: Female
  Weight: 61 kg

DRUGS (14)
  1. NEXAVAR [Suspect]
     Indication: RENAL CELL CARCINOMA STAGE UNSPECIFIED
     Dosage: 400 MG, BID, ORAL
     Route: 048
     Dates: start: 20060223, end: 20060310
  2. METHYLDOPA [Concomitant]
  3. INDERAL [Concomitant]
  4. ADALAT [Concomitant]
  5. NEXIUM [Concomitant]
  6. AMBIEN [Concomitant]
  7. ZETIA [Concomitant]
  8. VIT C [Concomitant]
  9. GARLIC [Concomitant]
  10. OMEGA 3 [FISH OIL] [Concomitant]
  11. LOPERAMIDE [Concomitant]
  12. MVI [VITAMINS NOS] [Concomitant]
  13. ROLAIDS [DIHYDROXYALUMINIUM SODIUM CARBONATE] [Concomitant]
  14. ACETAMINOPHEN [Concomitant]

REACTIONS (11)
  - ASTHENIA [None]
  - DIARRHOEA [None]
  - DYSPNOEA [None]
  - FALL [None]
  - FATIGUE [None]
  - HYPOAESTHESIA [None]
  - NEUROPATHY [None]
  - ORAL PAIN [None]
  - PARAESTHESIA [None]
  - RASH [None]
  - RASH MACULO-PAPULAR [None]
